FAERS Safety Report 6917128-4 (Version None)
Quarter: 2010Q3

REPORT INFORMATION
  Report Type: 
  Country: None (occurrence: None)
  Receive Date: 20100809
  Receipt Date: 20100809
  Transmission Date: 20110219
  Serious: No
  Sender: FDA-Public Use
  Company Number: None

PATIENT
  Age: 73 Year
  Sex: Male
  Weight: 103.4201 kg

DRUGS (1)
  1. LIPITOR [Suspect]
     Indication: PAIN IN EXTREMITY
     Dosage: 10 MG 1 TABLET PER DAY
     Dates: start: 20070610, end: 20100724

REACTIONS (2)
  - EXERCISE TOLERANCE DECREASED [None]
  - MYALGIA [None]
